FAERS Safety Report 5073970-9 (Version None)
Quarter: 2006Q3

REPORT INFORMATION
  Report Type: 
  Country: None (occurrence: None)
  Receive Date: 20060808
  Receipt Date: 20060801
  Transmission Date: 20061208
  Serious: Yes (Death)
  Sender: FDA-Public Use
  Company Number: 2006GB01326

PATIENT
  Age: 63 Year
  Sex: Female

DRUGS (9)
  1. OMEPRAZOLE [Suspect]
     Route: 048
  2. CITALOPRAM [Suspect]
     Route: 048
  3. PERINDOPRIL ERBUMINE [Suspect]
     Indication: HYPERTENSION
  4. ADIZEM-SR [Concomitant]
  5. BECOTIDE [Concomitant]
  6. FUROSEMIDE [Concomitant]
  7. ALBUTEROL SPIROS [Concomitant]
  8. SENNA [Concomitant]
  9. VITAMIN B COMPLEX CAP [Concomitant]

REACTIONS (1)
  - LARYNGEAL OEDEMA [None]
